FAERS Safety Report 5405748-8 (Version None)
Quarter: 2007Q3

REPORT INFORMATION
  Report Type: 
  Country: None (occurrence: None)
  Receive Date: 20070806
  Receipt Date: 20070724
  Transmission Date: 20080115
  Serious: Yes (Hospitalization, Other)
  Sender: FDA-Public Use
  Company Number: US-JNJFOC-20070405615

PATIENT
  Sex: Male
  Weight: 58.97 kg

DRUGS (2)
  1. REMICADE [Suspect]
     Indication: CROHN'S DISEASE
     Dosage: ON INFLIXIMAB 8-9 YEARS
     Route: 042
  2. 6 MP [Concomitant]
     Indication: CROHN'S DISEASE
     Dosage: 50-100 MG DAILY

REACTIONS (1)
  - ANGIOIMMUNOBLASTIC T-CELL LYMPHOMA [None]
